FAERS Safety Report 8602940-6 (Version None)
Quarter: 2012Q3

REPORT INFORMATION
  Report Type: 
  Country: None (occurrence: None)
  Receive Date: 20120817
  Receipt Date: 20120813
  Transmission Date: 20120928
  Serious: Yes (Hospitalization)
  Sender: FDA-Public Use
  Company Number: JP-GILEAD-2012-0059786

PATIENT
  Age: 40 Year
  Sex: Male

DRUGS (2)
  1. EMTRICITABINE/TENOFOVIR DISOPROXIL FUMARATE [Suspect]
     Indication: HIV INFECTION
     Dosage: 1 DF, QD
     Route: 048
     Dates: start: 20061229
  2. EFAVIRENZ [Concomitant]
     Indication: HIV INFECTION
     Dosage: UNK
     Dates: start: 20061229

REACTIONS (1)
  - GLOMERULONEPHRITIS MINIMAL LESION [None]
